FAERS Safety Report 12642584 (Version 7)
Quarter: 2016Q4

REPORT INFORMATION
  Report Type: Spontaneous
  Country: US (occurrence: US)
  Receive Date: 20160810
  Receipt Date: 20161116
  Transmission Date: 20170207
  Serious: Yes (Life-Threatening, Hospitalization)
  Sender: FDA-Public Use
  Company Number: US-ACTELION-A-US2016-140346

PATIENT
  Age: 40 Year
  Sex: Female
  Weight: 90.7 kg

DRUGS (5)
  1. XARELTO [Concomitant]
     Active Substance: RIVAROXABAN
  2. TREPROSTINIL DIOLAMIN [Suspect]
     Active Substance: TREPROSTINIL DIOLAMINE
     Indication: PULMONARY ARTERIAL HYPERTENSION
     Dosage: 1 MG, TID
     Route: 048
     Dates: start: 20160809
  3. VELETRI [Suspect]
     Active Substance: EPOPROSTENOL
     Indication: PULMONARY ARTERIAL HYPERTENSION
     Dosage: 20 NG/KG, PER MIN
     Route: 042
     Dates: start: 20160419, end: 20160811
  4. OPSUMIT [Suspect]
     Active Substance: MACITENTAN
     Indication: PULMONARY ARTERIAL HYPERTENSION
     Dosage: 10 MG, UNK
     Route: 048
  5. RIOCIGUAT [Concomitant]
     Active Substance: RIOCIGUAT

REACTIONS (10)
  - Device related sepsis [Unknown]
  - Cardiac pacemaker insertion [Unknown]
  - Presyncope [Unknown]
  - Pain in jaw [Unknown]
  - Hypertension [Unknown]
  - Dizziness [Unknown]
  - Drug dose omission [Unknown]
  - Muscle spasms [Unknown]
  - Weight increased [Unknown]
  - Device damage [Unknown]

NARRATIVE: CASE EVENT DATE: 20160712
